FAERS Safety Report 6568151-3 (Version None)
Quarter: 2010Q1

REPORT INFORMATION
  Report Type: 
  Country: None (occurrence: None)
  Receive Date: 20100203
  Receipt Date: 20100127
  Transmission Date: 20100710
  Serious: Yes (Life-Threatening, Hospitalization, Other)
  Sender: FDA-Public Use
  Company Number: CA-BAYER-201012618NA

PATIENT
  Age: 15 Year
  Sex: Female
  Weight: 72 kg

DRUGS (1)
  1. YASMIN [Suspect]
     Indication: DRUG USE FOR UNKNOWN INDICATION
     Route: 048

REACTIONS (6)
  - DISORIENTATION [None]
  - DIZZINESS [None]
  - DYSPNOEA [None]
  - FALL [None]
  - FEELING ABNORMAL [None]
  - SYNCOPE [None]
